FAERS Safety Report 14448346 (Version 1)
Quarter: 2018Q1

REPORT INFORMATION
  Report Type: Spontaneous
  Country: US (occurrence: US)
  Receive Date: 20180126
  Receipt Date: 20180126
  Transmission Date: 20180509
  Serious: Yes (Hospitalization)
  Sender: FDA-Public Use
  Company Number: None

PATIENT
  Age: 28 Year
  Sex: Female
  Weight: 136 kg

DRUGS (1)
  1. NIVOLUMAB [Suspect]
     Active Substance: NIVOLUMAB
     Indication: HODGKIN^S DISEASE

REACTIONS (6)
  - Foetal death [None]
  - Hypophagia [None]
  - Unintended pregnancy [None]
  - Ketoacidosis [None]
  - Exposure during pregnancy [None]
  - Starvation [None]

NARRATIVE: CASE EVENT DATE: 20180125
